FAERS Safety Report 6557591-4 (Version None)
Quarter: 2010Q1

REPORT INFORMATION
  Report Type: 
  Country: None (occurrence: None)
  Receive Date: 20100129
  Receipt Date: 20100119
  Transmission Date: 20100710
  Serious: Yes (Other)
  Sender: FDA-Public Use
  Company Number: FR-JNJFOC-20071107500

PATIENT
  Sex: Female
  Weight: 68 kg

DRUGS (11)
  1. PREZISTA [Suspect]
     Indication: HIV INFECTION
     Route: 048
  2. PREZISTA [Suspect]
     Route: 048
  3. PREZISTA [Suspect]
     Route: 048
  4. NORVIR [Suspect]
     Indication: HIV INFECTION
     Route: 048
  5. VIREAD [Suspect]
     Indication: HIV INFECTION
     Route: 048
  6. VIREAD [Suspect]
     Route: 048
  7. ZIAGEN [Suspect]
     Indication: HIV INFECTION
     Route: 048
  8. ZIAGEN [Suspect]
     Route: 048
  9. REYATAZ [Suspect]
     Indication: HIV INFECTION
     Route: 065
  10. TELZIR [Suspect]
     Indication: HIV INFECTION
     Route: 065
  11. KIVEXA [Suspect]
     Indication: HIV INFECTION

REACTIONS (8)
  - ANTIVIRAL DRUG LEVEL BELOW THERAPEUTIC [None]
  - CYTOLYTIC HEPATITIS [None]
  - DRUG EXPOSURE DURING PREGNANCY [None]
  - GESTATIONAL DIABETES [None]
  - NEPHROPATHY [None]
  - OFF LABEL USE [None]
  - PRE-ECLAMPSIA [None]
  - THROMBOCYTOPENIA [None]
